FAERS Safety Report 8612156-5 (Version None)
Quarter: 2012Q3

REPORT INFORMATION
  Report Type: 
  Country: None (occurrence: None)
  Receive Date: 20120822
  Receipt Date: 20120814
  Transmission Date: 20120928
  Serious: Yes (Hospitalization, Other)
  Sender: FDA-Public Use
  Company Number: US-ABBOTT-12P-163-0958754-00

PATIENT
  Sex: Female
  Weight: 59.928 kg

DRUGS (11)
  1. HUMIRA [Suspect]
     Indication: RHEUMATOID ARTHRITIS
     Dates: start: 20120101
  2. MEDROL [Concomitant]
     Indication: PRODUCT USED FOR UNKNOWN INDICATION
     Dosage: 1 AS DIRECTED WHEN NEEDED
  3. HUMIRA [Suspect]
     Indication: RHEUMATOID ARTHRITIS
     Dates: end: 20100101
  4. IMODIUM [Concomitant]
     Indication: PRODUCT USED FOR UNKNOWN INDICATION
  5. ELAVIL [Concomitant]
     Indication: PRODUCT USED FOR UNKNOWN INDICATION
     Dosage: 1 TO 2 TABLETS ONCE A DAY AT BEDTIME
  6. ORUDIS [Concomitant]
     Indication: PRODUCT USED FOR UNKNOWN INDICATION
  7. ACTONEL [Concomitant]
     Indication: PRODUCT USED FOR UNKNOWN INDICATION
  8. ALLEGRA D 24 HOUR [Concomitant]
     Indication: PRODUCT USED FOR UNKNOWN INDICATION
     Dosage: 180 MG - 240 MG, DAILY
  9. FOLIC ACID [Concomitant]
     Indication: PRODUCT USED FOR UNKNOWN INDICATION
  10. PRILOSEC [Concomitant]
     Indication: PRODUCT USED FOR UNKNOWN INDICATION
  11. METHOTREXATE [Concomitant]
     Indication: RHEUMATOID ARTHRITIS

REACTIONS (17)
  - THROMBOSIS IN DEVICE [None]
  - RHINITIS ALLERGIC [None]
  - CATARACT [None]
  - DEHYDRATION [None]
  - COLITIS ISCHAEMIC [None]
  - UPPER LIMB FRACTURE [None]
  - DEVICE MALFUNCTION [None]
  - SINUSITIS [None]
  - INJECTION SITE EXTRAVASATION [None]
  - RENAL FAILURE [None]
  - UPPER RESPIRATORY TRACT INFECTION [None]
  - ANAEMIA [None]
  - DIARRHOEA [None]
  - INJECTION SITE PAIN [None]
  - INJECTION SITE REACTION [None]
  - INCORRECT DOSE ADMINISTERED [None]
  - FATIGUE [None]
